FAERS Safety Report 6547054-4 (Version None)
Quarter: 2010Q1

REPORT INFORMATION
  Report Type: 
  Country: None (occurrence: None)
  Receive Date: 20100122
  Receipt Date: 20100119
  Transmission Date: 20100710
  Serious: Yes (Other)
  Sender: FDA-Public Use
  Company Number: FR-BRISTOL-MYERS SQUIBB COMPANY-14940043

PATIENT
  Age: 59 Year
  Sex: Male

DRUGS (5)
  1. VIDEX [Suspect]
     Indication: HIV INFECTION
     Route: 048
     Dates: start: 20030101
  2. SUSTIVA [Suspect]
     Indication: HIV INFECTION
     Route: 048
     Dates: start: 20030101
  3. VIREAD [Suspect]
     Indication: HIV INFECTION
     Dosage: VIREA,1TAB
     Route: 048
     Dates: start: 20030101
  4. KARDEGIC [Suspect]
     Route: 048
     Dates: start: 20070101
  5. PLAVIX [Suspect]
     Route: 048
     Dates: start: 20070101

REACTIONS (3)
  - DRY MOUTH [None]
  - WEIGHT DECREASED [None]
  - XEROPHTHALMIA [None]
